FAERS Safety Report 18049785 (Version 1)
Quarter: 2020Q3

REPORT INFORMATION
  Report Type: Spontaneous
  Country: RU (occurrence: RU)
  Receive Date: 20200721
  Receipt Date: 20200721
  Transmission Date: 20201103
  Serious: Yes (Hospitalization, Other)
  Sender: FDA-Public Use
  Company Number: RU-BAYER-2020-140719

PATIENT
  Sex: Female

DRUGS (1)
  1. YAZ PLUS [Suspect]
     Active Substance: DROSPIRENONE\ETHINYL ESTRADIOL
     Route: 048

REACTIONS (4)
  - Pregnancy on oral contraceptive [None]
  - Loss of consciousness [None]
  - Pulmonary embolism [None]
  - Drug ineffective [None]

NARRATIVE: CASE EVENT DATE: 2020
